FAERS Safety Report 8020552-2 (Version None)
Quarter: 2012Q1

REPORT INFORMATION
  Report Type: 
  Country: None (occurrence: None)
  Receive Date: 20120103
  Receipt Date: 20111228
  Transmission Date: 20120608
  Serious: Yes (Hospitalization)
  Sender: FDA-Public Use
  Company Number: US-CELGENEUS-163-21880-11112857

PATIENT
  Sex: Female
  Weight: 91.708 kg

DRUGS (27)
  1. CITALOPRAM HYDROBROMIDE [Concomitant]
     Dosage: 10 MILLIGRAM
     Route: 048
     Dates: start: 20101130
  2. CLONIDINE [Concomitant]
     Dosage: .1 MILLIGRAM
     Route: 048
     Dates: start: 20101130
  3. METOCLOPRAMIDE [Concomitant]
     Dosage: 10 MILLIGRAM
     Route: 048
     Dates: start: 20101130
  4. REVLIMID [Suspect]
     Indication: MULTIPLE MYELOMA
     Dosage: 25 MILLIGRAM
     Route: 048
     Dates: start: 20111020, end: 20111118
  5. METFORMIN HCL [Concomitant]
     Dosage: 1000 MILLIGRAM
     Route: 048
     Dates: start: 20101130
  6. VELCADE [Concomitant]
     Route: 058
     Dates: start: 20111107
  7. AMLODIPINE [Concomitant]
     Dosage: 10 MILLIGRAM
     Route: 048
     Dates: start: 20101130
  8. CALCITRIOL [Concomitant]
     Dosage: .5 MICROGRAM
     Route: 048
     Dates: start: 20101130
  9. CALCIUM 500 + VITAMIN D [Concomitant]
     Dosage: 500 MILLIGRAM
     Route: 048
     Dates: start: 20101130
  10. RESTORIL [Concomitant]
     Dosage: 15 MILLIGRAM
     Route: 048
     Dates: start: 20110907
  11. SIMVASTATIN [Concomitant]
     Dosage: 40 MILLIGRAM
     Route: 048
     Dates: start: 20101130
  12. JANUVIA [Concomitant]
     Dosage: 100 MILLIGRAM
     Route: 048
     Dates: start: 20101130
  13. MEGACE [Concomitant]
     Dosage: 400 MILLIGRAM/MILLILITERS
     Route: 048
     Dates: start: 20110228
  14. ASPIRIN [Concomitant]
     Dosage: 81 MILLIGRAM
     Route: 048
     Dates: start: 20101130
  15. LANTUS [Concomitant]
     Dosage: 100 UNIT/ML
     Route: 058
     Dates: start: 20111209
  16. PROCHLORPERAZINE MALEATE [Concomitant]
     Indication: NAUSEA
     Dosage: 10 MILLIGRAM
     Route: 048
     Dates: start: 20101130
  17. DEXAMETHASONE [Concomitant]
     Dosage: 4 MILLIGRAM
     Route: 048
     Dates: start: 20101130
  18. FLECAINIDE ACETATE [Concomitant]
     Dosage: 100 MILLIGRAM
     Route: 048
     Dates: start: 20101130
  19. LISINOPRIL [Concomitant]
     Dosage: 40 MILLIGRAM
     Route: 048
     Dates: start: 20110711
  20. FUROSEMIDE [Concomitant]
     Dosage: 40 MILLIGRAM
     Route: 048
     Dates: start: 20101130
  21. HUMALOG [Concomitant]
     Dosage: 100 UNIT/ML
     Route: 058
     Dates: start: 20111209
  22. NEURONTIN [Concomitant]
     Dosage: 300 MILLIGRAM
     Route: 048
     Dates: start: 20110124
  23. NEXIUM [Concomitant]
     Dosage: 40 MILLIGRAM
     Route: 048
     Dates: start: 20101130
  24. AREDIA [Concomitant]
     Route: 065
     Dates: start: 20110418
  25. PANTOPRAZOLE [Concomitant]
     Dosage: 40 MILLIGRAM
     Route: 048
     Dates: start: 20111209
  26. TRAMADOL HCL [Concomitant]
     Indication: PAIN
     Dosage: 50 MILLIGRAM
     Route: 048
     Dates: start: 20101130
  27. VITAMIN D [Concomitant]
     Dosage: 2000 UNITS
     Route: 048
     Dates: start: 20101130

REACTIONS (5)
  - PNEUMONIA [None]
  - RENAL FAILURE ACUTE [None]
  - NEPHROPATHY [None]
  - FOOD INTOLERANCE [None]
  - RIB FRACTURE [None]
